FAERS Safety Report 10973680 (Version 1)
Quarter: 2015Q1

REPORT INFORMATION
  Report Type: Spontaneous
  Country: US (occurrence: None)
  Receive Date: 20150226
  Receipt Date: 20150226
  Transmission Date: 20150721
  Serious: No
  Sender: FDA-Public Use
  Company Number: TPA2009A02570

PATIENT
  Age: 47 Year
  Sex: Female
  Weight: 104.33 kg

DRUGS (10)
  1. PRAVACHOL (PRAVASTATIN SODIUM) [Concomitant]
  2. SYNTHROID [Concomitant]
     Active Substance: LEVOTHYROXINE SODIUM
  3. NOVOLIN (INSULIN HUMAN INJECTION, ISOPHANE) [Concomitant]
  4. ULORIC [Suspect]
     Active Substance: FEBUXOSTAT
     Indication: GOUT
     Dosage: 1 IN 1 D
     Route: 048
     Dates: start: 20090831, end: 20090831
  5. LASIX [Concomitant]
     Active Substance: FUROSEMIDE
  6. COZAAR [Concomitant]
     Active Substance: LOSARTAN POTASSIUM
  7. SYMLIN (ALL OTHER THERAPEUTIC PRODUCTS) [Concomitant]
  8. ULORIC [Suspect]
     Active Substance: FEBUXOSTAT
     Indication: HYPERURICAEMIA
     Dosage: 1 IN 1 D
     Route: 048
     Dates: start: 20090831, end: 20090831
  9. ULORIC [Suspect]
     Active Substance: FEBUXOSTAT
     Indication: PROPHYLAXIS
     Dosage: 1 IN 1 D
     Route: 048
     Dates: start: 20090831, end: 20090831
  10. ULORIC [Suspect]
     Active Substance: FEBUXOSTAT
     Dosage: 1 IN 1 D
     Route: 048
     Dates: start: 20090831, end: 20090831

REACTIONS (4)
  - Cold sweat [None]
  - Nausea [None]
  - Rash [None]
  - Vomiting [None]

NARRATIVE: CASE EVENT DATE: 20090831
